FAERS Safety Report 7932397-X (Version None)
Quarter: 2011Q4

REPORT INFORMATION
  Report Type: 
  Country: None (occurrence: None)
  Receive Date: 20111122
  Receipt Date: 20111111
  Transmission Date: 20120403
  Serious: Yes (Hospitalization, Other)
  Sender: FDA-Public Use
  Company Number: NO-BIOGENIDEC-2011BI035250

PATIENT
  Age: 37 Year
  Sex: Female

DRUGS (4)
  1. NALTREXONE HYDROCHLORIDE [Concomitant]
  2. CYMBALTA [Concomitant]
  3. DIANE [Concomitant]
  4. TYSABRI [Suspect]
     Indication: RELAPSING-REMITTING MULTIPLE SCLEROSIS
     Route: 042
     Dates: start: 20100422, end: 20110121

REACTIONS (1)
  - PSYCHOTIC DISORDER DUE TO A GENERAL MEDICAL CONDITION [None]
